FAERS Safety Report 7501270-3 (Version None)
Quarter: 2011Q2

REPORT INFORMATION
  Report Type: 
  Country: None (occurrence: None)
  Receive Date: 20110524
  Receipt Date: 20110516
  Transmission Date: 20111010
  Serious: Yes (Hospitalization, Other)
  Sender: FDA-Public Use
  Company Number: CZ-BAXTER-2011BH016084

PATIENT
  Age: 47 Year
  Sex: Male

DRUGS (4)
  1. PROPOFOL [Suspect]
     Indication: VARICOSE VEIN OPERATION
     Route: 042
     Dates: start: 20110416, end: 20110416
  2. SUFENTA PRESERVATIVE FREE [Concomitant]
     Indication: INDUCTION AND MAINTENANCE OF ANAESTHESIA
     Dosage: 10 MICROGRAMS FOLLOWED BY 5 MICORGRAMS IN 15 MINUTES
     Route: 040
     Dates: start: 20110416
  3. PLASMA-LYTE 56 IN PLASTIC CONTAINER [Suspect]
     Indication: VARICOSE VEIN OPERATION
     Route: 041
     Dates: start: 20110416, end: 20110416
  4. MIDAZOLAM HCL [Concomitant]
     Indication: INDUCTION AND MAINTENANCE OF ANAESTHESIA
     Route: 040
     Dates: start: 20110416

REACTIONS (10)
  - VOMITING [None]
  - HEPATIC ENZYME INCREASED [None]
  - ABDOMINAL PAIN [None]
  - ORAL HERPES [None]
  - BLOOD CREATININE INCREASED [None]
  - CYANOSIS [None]
  - CHILLS [None]
  - PYREXIA [None]
  - BLOOD UREA INCREASED [None]
  - APHTHOUS STOMATITIS [None]
